FAERS Safety Report 20214699 (Version 1)
Quarter: 2021Q4

REPORT INFORMATION
  Report Type: Spontaneous
  Country: None (occurrence: US)
  Receive Date: 20211221
  Receipt Date: 20211221
  Transmission Date: 20220304
  Serious: Yes (Death)
  Sender: FDA-Public Use
  Company Number: US-Wellstat Therapeutics Corporation-2123250

PATIENT
  Age: 37 Year
  Sex: Female
  Weight: 79.545 kg

DRUGS (5)
  1. XURIDEN [Suspect]
     Active Substance: URIDINE TRIACETATE
     Indication: Oroticaciduria
     Route: 048
     Dates: end: 2021
  2. WARFARIN SODIUM [Concomitant]
     Active Substance: WARFARIN SODIUM
     Route: 048
  3. ONDANSETRON [Concomitant]
     Active Substance: ONDANSETRON
     Route: 048
  4. BISACODYL [Concomitant]
     Active Substance: BISACODYL
     Route: 048
  5. NEXIUM [Concomitant]
     Active Substance: ESOMEPRAZOLE MAGNESIUM
     Route: 048

REACTIONS (1)
  - Condition aggravated [Fatal]

NARRATIVE: CASE EVENT DATE: 20211001
